FAERS Safety Report 19800400 (Version 2)
Quarter: 2021Q3

REPORT INFORMATION
  Report Type: Report from Study
  Country: US (occurrence: US)
  Receive Date: 20210907
  Receipt Date: 20210915
  Transmission Date: 20211014
  Serious: Yes (Hospitalization)
  Sender: FDA-Public Use
  Company Number: US-EXELIXIS-CABO-21043731

PATIENT
  Age: 63 Year
  Sex: Male

DRUGS (4)
  1. CABOMETYX [Suspect]
     Active Substance: CABOZANTINIB S-MALATE
     Indication: HEPATOCELLULAR CARCINOMA
     Dosage: 40 MG
     Dates: start: 20210809, end: 20210829
  2. NADOLOL. [Concomitant]
     Active Substance: NADOLOL
  3. AMLODIPINE [Concomitant]
     Active Substance: AMLODIPINE BESYLATE
  4. LEVOTHYROXINE. [Concomitant]
     Active Substance: LEVOTHYROXINE

REACTIONS (8)
  - Anal rash [Unknown]
  - Blood pressure increased [Recovered/Resolved]
  - Cholecystitis acute [Unknown]
  - Hepatic cirrhosis [Unknown]
  - Cholelithiasis [Not Recovered/Not Resolved]
  - Pancreatitis acute [Recovering/Resolving]
  - Hepatitis C [Unknown]
  - Oral mucosal eruption [Unknown]

NARRATIVE: CASE EVENT DATE: 20210829
